FAERS Safety Report 18968397 (Version 3)
Quarter: 2021Q2

REPORT INFORMATION
  Report Type: Spontaneous
  Country: JP (occurrence: JP)
  Receive Date: 20210304
  Receipt Date: 20210526
  Transmission Date: 20210717
  Serious: Yes (Death, Life-Threatening, Other)
  Sender: FDA-Public Use
  Company Number: JP-009507513-2102JPN000084J

PATIENT
  Age: 58 Year
  Sex: Female
  Weight: 57 kg

DRUGS (14)
  1. MIYA?BM [Suspect]
     Active Substance: CLOSTRIDIUM BUTYRICUM SPORES STRAIN M-55
     Dosage: 1 DOSAGE FORM, TID
     Route: 048
  2. LOXOPROFEN [LOXOPROFEN SODIUM] [Suspect]
     Active Substance: LOXOPROFEN SODIUM
     Dosage: 60 MILLIGRAM, TID
     Route: 048
  3. OXYCONTIN [Suspect]
     Active Substance: OXYCODONE HYDROCHLORIDE
     Dosage: 15 MILLIGRAM, BID
     Route: 048
     Dates: start: 20210201, end: 20210208
  4. KEYTRUDA [Suspect]
     Active Substance: PEMBROLIZUMAB
     Indication: PANCREATIC CARCINOMA RECURRENT
     Dosage: 200 MILLIGRAM, Q3W
     Route: 041
     Dates: start: 20201116, end: 20210104
  5. OXYCONTIN [Suspect]
     Active Substance: OXYCODONE HYDROCHLORIDE
     Dosage: 10 MILLIGRAM, BID
     Route: 048
     Dates: start: 20210129, end: 20210201
  6. CYMBALTA [Suspect]
     Active Substance: DULOXETINE HYDROCHLORIDE
     Dosage: 40 MILLIGRAM, QD
     Route: 048
  7. LOPERAMIDE [LOPERAMIDE HYDROCHLORIDE] [Concomitant]
     Active Substance: LOPERAMIDE HYDROCHLORIDE
     Indication: DIARRHOEA
     Dosage: 1 MILLIGRAM, PRN
     Dates: start: 20190809, end: 20210208
  8. KEYTRUDA [Suspect]
     Active Substance: PEMBROLIZUMAB
     Dosage: 200 MILLIGRAM, Q3W
     Route: 041
     Dates: start: 20210208, end: 20210208
  9. FAMOTIDINE. [Suspect]
     Active Substance: FAMOTIDINE
     Dosage: 20 MILLIGRAM, BID
     Route: 048
  10. OXINORM [OXYCODONE HYDROCHLORIDE] [Suspect]
     Active Substance: OXYCODONE HYDROCHLORIDE
     Indication: PAIN
     Dosage: 5 MILLIGRAM, WHEN HAVING PAIN
     Route: 048
     Dates: start: 20210129
  11. LIPACREON [Suspect]
     Active Substance: PANCRELIPASE
     Dosage: 1800 MILLIGRAM, TID
     Route: 048
  12. OXYCONTIN [Suspect]
     Active Substance: OXYCODONE HYDROCHLORIDE
     Dosage: 5 MILLIGRAM, BID
     Route: 048
     Dates: start: 20210125, end: 20210129
  13. OXYCONTIN [Suspect]
     Active Substance: OXYCODONE HYDROCHLORIDE
     Dosage: 20 MILLIGRAM, BID
     Route: 048
     Dates: start: 20210208
  14. OXINORM [OXYCODONE HYDROCHLORIDE] [Suspect]
     Active Substance: OXYCODONE HYDROCHLORIDE
     Indication: PAIN
     Dosage: 2.5 MILLIGRAM, WHEN HAVING PAIN
     Route: 048
     Dates: start: 20210104, end: 20210129

REACTIONS (7)
  - Infection [Fatal]
  - Hepatic function abnormal [Unknown]
  - Febrile neutropenia [Fatal]
  - Abdominal pain [Unknown]
  - Sepsis [Fatal]
  - Diarrhoea [Not Recovered/Not Resolved]
  - Oedema peripheral [Not Recovered/Not Resolved]

NARRATIVE: CASE EVENT DATE: 20201228
